FAERS Safety Report 4781129-5 (Version None)
Quarter: 2005Q3

REPORT INFORMATION
  Report Type: 
  Country: None (occurrence: None)
  Receive Date: 20050928
  Receipt Date: 20041013
  Transmission Date: 20060218
  Serious: Yes (Other)
  Sender: FDA-Public Use
  Company Number: US-KINGPHARMUSA00001-K200401587

PATIENT
  Age: 68 Year
  Sex: Male
  Weight: 77 kg

DRUGS (6)
  1. ALTACE [Suspect]
     Indication: HYPERTENSION
     Dosage: 10 MG, QD
     Route: 048
     Dates: start: 20031201, end: 20041004
  2. ALTACE [Suspect]
     Dosage: 20 MG, QD
     Route: 048
     Dates: start: 20041005, end: 20050101
  3. ALTACE [Suspect]
     Dosage: 10 MG, QD
     Route: 048
     Dates: start: 20050101
  4. NASACORT [Concomitant]
     Dates: end: 20040101
  5. VERY GREEN FORMULA [Concomitant]
     Dates: start: 20040401, end: 20040101
  6. HYDROCHLOROTHIAZIDE [Concomitant]
     Indication: HYPERTENSION
     Dosage: 25 MG, QD
     Route: 048
     Dates: start: 20041001, end: 20040101

REACTIONS (5)
  - ABDOMINAL DISCOMFORT [None]
  - ABDOMINAL TENDERNESS [None]
  - MEMORY IMPAIRMENT [None]
  - MENINGEAL DISORDER [None]
  - TINNITUS [None]
